FAERS Safety Report 23520198 (Version 1)
Quarter: 2024Q1

REPORT INFORMATION
  Report Type: Spontaneous
  Country: US (occurrence: US)
  Receive Date: 20240214
  Receipt Date: 20240214
  Transmission Date: 20240410
  Serious: No
  Sender: FDA-Public Use
  Company Number: US-BIOGEN-2024BI01250002

PATIENT
  Sex: Male

DRUGS (11)
  1. TECFIDERA [Suspect]
     Active Substance: DIMETHYL FUMARATE
     Indication: Multiple sclerosis
     Dosage: STARTING DOSE
     Route: 050
     Dates: start: 202210
  2. TECFIDERA [Suspect]
     Active Substance: DIMETHYL FUMARATE
     Dosage: MAINTENANCE DOSE
     Route: 050
     Dates: end: 202310
  3. LIORESAL [Concomitant]
     Active Substance: BACLOFEN
     Route: 050
     Dates: start: 20230814
  4. KEFLEX [Concomitant]
     Active Substance: CEPHALEXIN
     Dosage: BEDTIME
     Route: 050
     Dates: start: 20230906
  5. VITAMIN D3 [Concomitant]
     Active Substance: CHOLECALCIFEROL
     Route: 050
     Dates: start: 20230814
  6. CYANOCOBALAMIN [Concomitant]
     Active Substance: CYANOCOBALAMIN
     Route: 050
     Dates: start: 20230814
  7. FLECTOR [Concomitant]
     Active Substance: DICLOFENAC EPOLAMINE
     Dosage: 1.3 PERCENT PATCH. APPLY 1 PATCH TO SKIN DAILY
     Route: 050
     Dates: start: 20230814
  8. LEXAPRO [Concomitant]
     Active Substance: ESCITALOPRAM OXALATE
     Route: 050
     Dates: start: 20230814
  9. PRAVACHOL [Concomitant]
     Active Substance: PRAVASTATIN SODIUM
     Dosage: EVERY NIGHT
     Route: 050
     Dates: start: 20230814
  10. BACTRIM [Concomitant]
     Active Substance: SULFAMETHOXAZOLE\TRIMETHOPRIM
     Dosage: 400-80 MG
     Route: 050
     Dates: start: 20230826
  11. FLOMAX [Concomitant]
     Active Substance: TAMSULOSIN HYDROCHLORIDE
     Route: 050
     Dates: start: 20230825

REACTIONS (2)
  - Gastrointestinal disorder [Unknown]
  - Enuresis [Unknown]
